FAERS Safety Report 22690710 (Version 3)
Quarter: 2024Q1

REPORT INFORMATION
  Report Type: Spontaneous
  Country: AT (occurrence: AT)
  Receive Date: 20230711
  Receipt Date: 20240129
  Transmission Date: 20240410
  Serious: Yes (Hospitalization)
  Sender: FDA-Public Use
  Company Number: AT-ROCHE-3226138

PATIENT
  Age: 64 Year
  Sex: Female

DRUGS (61)
  1. CAPECITABINE [Suspect]
     Active Substance: CAPECITABINE
     Indication: HER2 positive breast cancer
     Dosage: FREQUENCY: OTHER?FREQUENCY: OTHER MOST RECENT DOSE PRIOR TO THE EVENT: 19/JAN/2021?D1-D14, Q21D
     Route: 048
     Dates: start: 20201031, end: 20201120
  2. CAPECITABINE [Suspect]
     Active Substance: CAPECITABINE
     Indication: HER2 positive breast cancer
     Dosage: MOST RECENT DOSE PRIOR TO THE EVENT: 19/JAN/2021 ?D1-14. Q21D?AMOUNT PER ADMINISTRATION WAS CHAN...
     Route: 048
     Dates: start: 20201121, end: 20201218
  3. CAPECITABINE [Suspect]
     Active Substance: CAPECITABINE
     Indication: HER2 positive breast cancer
     Dosage: MOST RECENT DOSE PRIOR TO THE EVENT: 19/JAN/2021 ?D1-14. Q21D
     Route: 048
     Dates: start: 20210119, end: 20210522
  4. PERTUZUMAB [Suspect]
     Active Substance: PERTUZUMAB
     Indication: HER2 positive breast cancer
     Route: 042
     Dates: start: 20190315, end: 20190315
  5. PERTUZUMAB [Suspect]
     Active Substance: PERTUZUMAB
     Indication: HER2 positive breast cancer
     Dosage: MOST RECENT DOSE PRIOR TO AE 03/JAN/2020
     Route: 042
     Dates: start: 20190315
  6. PERTUZUMAB [Suspect]
     Active Substance: PERTUZUMAB
     Indication: HER2 positive breast cancer
     Route: 042
     Dates: start: 20190403, end: 20200103
  7. PERTUZUMAB [Suspect]
     Active Substance: PERTUZUMAB
     Indication: HER2 positive breast cancer
     Dosage: MOST RECENT DOSE PRIOR TO AE
     Route: 042
     Dates: start: 20200103
  8. ADO-TRASTUZUMAB EMTANSINE [Suspect]
     Active Substance: ADO-TRASTUZUMAB EMTANSINE
     Indication: HER2 positive breast cancer
     Dosage: MOST RECENT DOSE PRIOR TO AE 26/AUG/2020
     Route: 042
     Dates: start: 20200129, end: 20200826
  9. ADO-TRASTUZUMAB EMTANSINE [Suspect]
     Active Substance: ADO-TRASTUZUMAB EMTANSINE
     Indication: HER2 positive breast cancer
     Dosage: MOST RECENT DOSE PRIOR TO AE
     Route: 042
     Dates: start: 20200826
  10. TRASTUZUMAB [Suspect]
     Active Substance: TRASTUZUMAB
     Indication: HER2 positive breast cancer
     Dosage: SOLUTION FOR INFUSION INSTEAD OF SOLUTION FOR INJECTION?INTRAVENOUS USE INSTEAD OF SUBCUTANEOUS USE
     Route: 042
     Dates: start: 20190315, end: 20190315
  11. TRASTUZUMAB [Suspect]
     Active Substance: TRASTUZUMAB
     Indication: HER2 positive breast cancer
     Dosage: MOST RECENT DOSE PRIOR TO AE 21/OCT/2020
     Route: 042
     Dates: start: 20190315, end: 20200103
  12. TRASTUZUMAB [Suspect]
     Active Substance: TRASTUZUMAB
     Indication: HER2 positive breast cancer
     Dosage: MOST RECENT DOSE PRIOR TO AE 21/OCT/2020?SOLUTION FOR INFUSION INSTEAD OF SOLUTION FOR INJECTION...
     Route: 042
     Dates: start: 20190403, end: 20200103
  13. TRASTUZUMAB [Suspect]
     Active Substance: TRASTUZUMAB
     Indication: HER2 positive breast cancer
     Dosage: MOST RECENT DOSE PRIOR TO AE
     Route: 058
     Dates: start: 20201021, end: 20210429
  14. VINORELBINE [Suspect]
     Active Substance: VINORELBINE TARTRATE
     Indication: HER2 positive breast cancer
     Route: 042
     Dates: start: 20190315, end: 20190625
  15. VINORELBINE [Suspect]
     Active Substance: VINORELBINE TARTRATE
     Indication: HER2 positive breast cancer
     Dosage: AMOUNT PER ADMINISTRATION WAS CHANGED FROM 28 TO 58 MG.
     Route: 042
     Dates: start: 20190918, end: 20200103
  16. DOXORUBICIN [Suspect]
     Active Substance: DOXORUBICIN
     Indication: HER2 positive breast cancer
     Route: 042
     Dates: start: 20220727, end: 20220818
  17. PERTUZUMAB\TRASTUZUMAB [Suspect]
     Active Substance: PERTUZUMAB\TRASTUZUMAB
     Indication: HER2 positive breast cancer
     Route: 058
     Dates: start: 20220727, end: 20220818
  18. FAM-TRASTUZUMAB DERUXTECAN-NXKI [Suspect]
     Active Substance: FAM-TRASTUZUMAB DERUXTECAN-NXKI
     Indication: HER2 positive breast cancer
     Route: 042
     Dates: start: 20210628, end: 20210628
  19. FAM-TRASTUZUMAB DERUXTECAN-NXKI [Suspect]
     Active Substance: FAM-TRASTUZUMAB DERUXTECAN-NXKI
     Indication: HER2 positive breast cancer
     Route: 042
     Dates: start: 20210721, end: 20210811
  20. FAM-TRASTUZUMAB DERUXTECAN-NXKI [Suspect]
     Active Substance: FAM-TRASTUZUMAB DERUXTECAN-NXKI
     Indication: HER2 positive breast cancer
     Route: 042
     Dates: start: 20210901, end: 20211228
  21. FAM-TRASTUZUMAB DERUXTECAN-NXKI [Suspect]
     Active Substance: FAM-TRASTUZUMAB DERUXTECAN-NXKI
     Indication: HER2 positive breast cancer
     Dosage: START OF THERAPY DATE: 18-JAN-2022 INSTEAD OF 17-JAN-2022
     Route: 042
     Dates: start: 20220118, end: 20220209
  22. FAM-TRASTUZUMAB DERUXTECAN-NXKI [Suspect]
     Active Substance: FAM-TRASTUZUMAB DERUXTECAN-NXKI
     Indication: HER2 positive breast cancer
     Route: 042
     Dates: start: 20220302, end: 20220512
  23. TUCATINIB [Suspect]
     Active Substance: TUCATINIB
     Indication: HER2 positive breast cancer
     Dosage: AMOUNT PER ADMINISTRATION WAS CHANGED FROM 30 TO 300 MG.
     Route: 048
     Dates: start: 20201120, end: 20210108
  24. TUCATINIB [Suspect]
     Active Substance: TUCATINIB
     Indication: HER2 positive breast cancer
     Route: 048
     Dates: start: 20210108, end: 20210428
  25. TUCATINIB [Suspect]
     Active Substance: TUCATINIB
     Indication: HER2 positive breast cancer
     Route: 048
     Dates: start: 20210509, end: 20210528
  26. SACITUZUMAB GOVITECAN [Suspect]
     Active Substance: SACITUZUMAB GOVITECAN
     Indication: HER2 positive breast cancer
     Dosage: D1+D8, Q21D
     Route: 042
     Dates: start: 20221207, end: 20230105
  27. ERIBULIN MESYLATE [Suspect]
     Active Substance: ERIBULIN MESYLATE
     Indication: HER2 positive breast cancer
     Dosage: D1+D8. Q21D
     Route: 042
     Dates: start: 20230209, end: 20230322
  28. HERCEPTIN HYLECTA [Suspect]
     Active Substance: HYALURONIDASE-OYSK\TRASTUZUMAB
     Route: 058
     Dates: start: 20201021, end: 20210429
  29. Paspertin [Concomitant]
     Indication: Nausea
     Dosage: ONGOING = CHECKED
     Route: 048
     Dates: start: 20210708
  30. POLYETHYLENE GLYCOL 3350\POTASSIUM CHLORIDE\SODIUM BICARBONATE\SODIUM [Concomitant]
     Active Substance: POLYETHYLENE GLYCOL 3350\POTASSIUM CHLORIDE\SODIUM BICARBONATE\SODIUM CHLORIDE
     Indication: Prophylaxis
     Dosage: ONGOING = CHECKED?SACHET
     Route: 048
     Dates: start: 20210722
  31. ESOMEPRAZOLE [Concomitant]
     Active Substance: ESOMEPRAZOLE
     Indication: Abdominal pain upper
     Dosage: ONGOING = CHECKED
     Route: 048
     Dates: start: 20190726
  32. ESOMEPRAZOLE [Concomitant]
     Active Substance: ESOMEPRAZOLE
     Indication: Prophylaxis
     Dosage: ONGOING = CHECKED
     Route: 048
     Dates: start: 20190726
  33. ESOMEPRAZOLE [Concomitant]
     Active Substance: ESOMEPRAZOLE
     Indication: Abdominal pain upper
     Dosage: ONGOING = CHECKED
     Dates: start: 20211215
  34. ESOMEPRAZOLE [Concomitant]
     Active Substance: ESOMEPRAZOLE
     Indication: Prophylaxis
     Dosage: ONGOING = CHECKED
     Dates: start: 20211215
  35. DEXAMETHASONE [Concomitant]
     Active Substance: DEXAMETHASONE
     Indication: Prophylaxis
     Dosage: ONGOING = CHECKED ?D1,2 AND 3 OF EACH CYCLE OF TDXT
     Route: 048
     Dates: start: 20210628, end: 20220514
  36. DEXAMETHASONE [Concomitant]
     Active Substance: DEXAMETHASONE
     Indication: Prophylaxis
     Dosage: DAY 1 OF EACH CYCLE OF SACITUZUMAB-GOVIT
     Route: 048
     Dates: start: 20221207, end: 20230105
  37. DEXAMETHASONE [Concomitant]
     Active Substance: DEXAMETHASONE
     Indication: Prophylaxis
     Dosage: ONGOING = CHECKED?D1,2 AND 3 OF EACH CYCLE OF TDXT
     Route: 048
     Dates: start: 20221208, end: 20230107
  38. DEXAMETHASONE [Concomitant]
     Active Substance: DEXAMETHASONE
     Indication: Prophylaxis
     Dosage: DAY 1 OF EACH CYCLE OF SACITUZUMAB-GOVIT
     Route: 048
     Dates: start: 20230209
  39. APREPITANT [Concomitant]
     Active Substance: APREPITANT
     Dosage: ONGOING = CHECKED
     Route: 048
     Dates: start: 20210721, end: 20220512
  40. APREPITANT [Concomitant]
     Active Substance: APREPITANT
     Dosage: ONGOING = CHECKED D1-14
     Route: 048
     Dates: start: 20210721
  41. APREPITANT [Concomitant]
     Active Substance: APREPITANT
     Dosage: ONGOING = CHECKED D2+D3 OF EACH CYCLE OF TDXT
     Route: 048
     Dates: start: 20210722, end: 20220514
  42. APREPITANT [Concomitant]
     Active Substance: APREPITANT
     Dosage: ONGOING = CHECKED D1
     Route: 048
     Dates: start: 20210722
  43. NADROPARIN CALCIUM [Concomitant]
     Active Substance: NADROPARIN CALCIUM
     Indication: Prophylaxis
     Dosage: ONGOING = CHECKED ?0.30 ML (MILLILITER; CM3)
     Route: 058
     Dates: start: 20190208
  44. ZOFRAN [Concomitant]
     Active Substance: ONDANSETRON HYDROCHLORIDE
     Indication: Prophylaxis
     Dosage: ONGOING = CHECKED
     Route: 048
     Dates: start: 20190315
  45. ZOFRAN [Concomitant]
     Active Substance: ONDANSETRON HYDROCHLORIDE
     Indication: Prophylaxis
     Dosage: ONGOING = CHECKED D1 AND D2 OF EACH CYCLE OF CAELYX
     Route: 048
     Dates: start: 20221207, end: 20230105
  46. LOPERAMIDE HYDROCHLORIDE [Concomitant]
     Active Substance: LOPERAMIDE HYDROCHLORIDE
     Indication: Prophylaxis
     Dosage: ONGOING = CHECKED
     Route: 048
     Dates: start: 20190315
  47. SUCRALFATE [Concomitant]
     Active Substance: SUCRALFATE
     Indication: HER2 positive breast cancer
     Dosage: ONGOING = CHECKED
     Route: 048
     Dates: start: 20190403
  48. SUCRALFATE [Concomitant]
     Active Substance: SUCRALFATE
     Indication: Prophylaxis
     Dosage: ONGOING = CHECKED
     Route: 048
     Dates: start: 20190403
  49. ZYPREXA [Concomitant]
     Active Substance: OLANZAPINE
     Indication: Nausea
     Dosage: ONGOING = CHECKED, D14
     Route: 048
     Dates: start: 20210721
  50. EMEND [Concomitant]
     Active Substance: APREPITANT
     Indication: Nausea
     Dosage: ONGOING = CHECKED D1-14?AMOUND PER ADMINISTRATION WAS CHANGED FROM 2.5 TO 125 MG?ONGOING = CHEC...
     Route: 048
     Dates: start: 20210721, end: 20220512
  51. EMEND [Concomitant]
     Active Substance: APREPITANT
     Indication: Nausea
     Dosage: ONGOING = CHECKED, D1?AMOUND PER ADMINISTRATION WAS CHANGED FROM 125 TO 80 MG?ONGOING = CHECKED...
     Route: 048
     Dates: start: 20210722, end: 20220514
  52. AMOXICILLIN\CLAVULANATE POTASSIUM [Concomitant]
     Active Substance: AMOXICILLIN\CLAVULANATE POTASSIUM
     Dosage: 16 OCT 2019 } EXANTHEMA AREA OF CLAVICULA
     Route: 048
     Dates: start: 20191030, end: 20191107
  53. AMOXICILLIN\CLAVULANATE POTASSIUM [Concomitant]
     Active Substance: AMOXICILLIN\CLAVULANATE POTASSIUM
     Route: 048
     Dates: start: 20230215, end: 20230225
  54. DIPHENHYDRAMINE [Concomitant]
     Active Substance: DIPHENHYDRAMINE
     Indication: Prophylaxis
     Dosage: DAY 1 OF EACH CYCLE OF SACITUZUMAB-GOV
     Route: 048
     Dates: start: 20221207, end: 20230105
  55. ONDANSETRON [Concomitant]
     Active Substance: ONDANSETRON
     Indication: Prophylaxis
     Dosage: ONGOING = CHECKED
     Route: 048
     Dates: start: 20190315
  56. ONDANSETRON [Concomitant]
     Active Substance: ONDANSETRON
     Indication: Prophylaxis
     Dosage: ONGOING = CHECKED?D1 AND D2 OF EACH CYCLE OF CAELYX
     Route: 048
     Dates: start: 20221207, end: 20230105
  57. ONDANSETRON [Concomitant]
     Active Substance: ONDANSETRON
     Indication: Prophylaxis
     Route: 048
     Dates: start: 20221208, end: 20230107
  58. ONDANSETRON [Concomitant]
     Active Substance: ONDANSETRON
     Indication: Prophylaxis
     Route: 048
     Dates: start: 20230209
  59. ACETAMINOPHEN [Concomitant]
     Active Substance: ACETAMINOPHEN
     Indication: Prophylaxis
     Dosage: DAY 1 OF EACH CYCLE OF SACITUZUMAB-GOV
     Dates: start: 20221207, end: 20230105
  60. PREDNISOLONE SODIUM SUCCINATE [Concomitant]
     Active Substance: PREDNISOLONE SODIUM SUCCINATE
     Indication: Prophylaxis
     Dosage: D1 OF EACH CYCLE OF CAELYX
     Route: 042
     Dates: start: 20220727, end: 20220915
  61. FRAXIPARIN (Nadroparin calcium) [Concomitant]
     Dosage: ONGOING = CHECKED?0.30 ML (MILLILITER; CM3)
     Route: 058
     Dates: start: 20190208

REACTIONS (2)
  - Pneumothorax [Recovered/Resolved with Sequelae]
  - Pneumonia [Not Recovered/Not Resolved]

NARRATIVE: CASE EVENT DATE: 20221115
